FAERS Safety Report 8536235-6 (Version None)
Quarter: 2012Q3

REPORT INFORMATION
  Report Type: 
  Country: None (occurrence: None)
  Receive Date: 20120725
  Receipt Date: 20120719
  Transmission Date: 20120928
  Serious: Yes (Other)
  Sender: FDA-Public Use
  Company Number: US-PFIZER INC-2012175715

PATIENT
  Sex: Female
  Weight: 46.259 kg

DRUGS (7)
  1. LYRICA [Suspect]
     Indication: PAIN
     Dosage: UNK, 2X/DAY
     Route: 048
     Dates: end: 20120101
  2. VALIUM [Concomitant]
     Indication: MUSCLE RELAXANT THERAPY
  3. LYRICA [Suspect]
     Dosage: UNK, 1X/DAY
     Route: 048
     Dates: start: 20120101, end: 20120101
  4. VALIUM [Concomitant]
     Indication: ANXIETY
  5. VALIUM [Concomitant]
     Indication: SLEEP DISORDER
  6. VALIUM [Concomitant]
     Indication: NEUROPATHY PERIPHERAL
     Dosage: UNK
  7. VALIUM [Concomitant]
     Indication: PAIN

REACTIONS (9)
  - CONVULSION [None]
  - HEAD INJURY [None]
  - WEIGHT INCREASED [None]
  - INTERVERTEBRAL DISC DEGENERATION [None]
  - SPEECH DISORDER [None]
  - GAIT DISTURBANCE [None]
  - MEMORY IMPAIRMENT [None]
  - DRUG INEFFECTIVE [None]
  - NODULE [None]
